FAERS Safety Report 16222135 (Version 4)
Quarter: 2019Q3

REPORT INFORMATION
  Report Type: Spontaneous
  Country: US (occurrence: US)
  Receive Date: 20190422
  Receipt Date: 20190903
  Transmission Date: 20191004
  Serious: Yes (Hospitalization, Other)
  Sender: FDA-Public Use
  Company Number: US-PROCTER+GAMBLE-GS19039732

PATIENT
  Age: 12 Year
  Sex: Female
  Weight: 71.2 kg

DRUGS (14)
  1. TRAZODONE [Concomitant]
     Active Substance: TRAZODONE HYDROCHLORIDE
     Indication: INSOMNIA
     Dosage: 50 MILLIGRAM, 1 /DAY
     Route: 048
  2. DAYQUIL COLD AND FLU [Interacting]
     Active Substance: ACETAMINOPHEN\DEXTROMETHORPHAN HYDROBROMIDE\PHENYLEPHRINE HYDROCHLORIDE
     Indication: OROPHARYNGEAL PAIN
  3. PROZAC [Interacting]
     Active Substance: FLUOXETINE HYDROCHLORIDE
     Indication: DEPRESSION
     Dosage: 10 MILLIGRAM, 1 /DAY
     Route: 048
  4. ALBUTEROL                          /00139501/ [Concomitant]
     Active Substance: ALBUTEROL
     Dosage: INHALE 2 PUFFS BY MOUTH EVERY 4-6 HOURS AS NEEDED
  5. HYDROCORTISONE. [Concomitant]
     Active Substance: HYDROCORTISONE
  6. DAYQUIL COLD AND FLU [Suspect]
     Active Substance: ACETAMINOPHEN\DEXTROMETHORPHAN HYDROBROMIDE\PHENYLEPHRINE HYDROCHLORIDE
     Indication: NASOPHARYNGITIS
     Dosage: 2 CAPSUL, 1 ONLY
     Route: 048
     Dates: start: 20190223, end: 20190223
  7. DAYQUIL COLD AND FLU [Interacting]
     Active Substance: ACETAMINOPHEN\DEXTROMETHORPHAN HYDROBROMIDE\PHENYLEPHRINE HYDROCHLORIDE
     Indication: NASAL CONGESTION
  8. METFORMIN [Concomitant]
     Active Substance: METFORMIN HYDROCHLORIDE
     Dosage: 500 MILLIGRAM, DAILY
     Route: 048
  9. RISPERDAL [Concomitant]
     Active Substance: RISPERIDONE
  10. DEPAKOTE [Concomitant]
     Active Substance: DIVALPROEX SODIUM
  11. MIRALAX [Concomitant]
     Active Substance: POLYETHYLENE GLYCOL 3350
     Dosage: 17 GRAM, 1 /DAY
     Route: 048
  12. MELATONIN [Concomitant]
     Active Substance: MELATONIN
     Dosage: 2 TABLETS (10 MG) DAILY
     Route: 048
  13. ZIPRASIDONE. [Concomitant]
     Active Substance: ZIPRASIDONE
     Dosage: 40 MILLIGRAM, 2 /DAY
     Route: 048
  14. FERROUS SULFATE. [Concomitant]
     Active Substance: FERROUS SULFATE

REACTIONS (100)
  - Hallucination, visual [Recovered/Resolved]
  - Staring [Recovered/Resolved]
  - Facial spasm [Unknown]
  - Mental status changes [Recovered/Resolved]
  - Fear of animals [Unknown]
  - Agitation [Recovered/Resolved]
  - Listless [Unknown]
  - Intentional self-injury [Unknown]
  - Fatigue [Not Recovered/Not Resolved]
  - Anal incontinence [Recovered/Resolved]
  - Abdominal pain upper [Unknown]
  - Dyspnoea [Unknown]
  - Musculoskeletal stiffness [Recovered/Resolved]
  - Hallucination, auditory [Recovered/Resolved]
  - Depressive symptom [Not Recovered/Not Resolved]
  - Dysmetria [Unknown]
  - Psychomotor hyperactivity [Unknown]
  - Protein total increased [Unknown]
  - Memory impairment [Unknown]
  - Mood swings [Unknown]
  - Suprapubic pain [Unknown]
  - Asthenia [Unknown]
  - Poor quality sleep [Unknown]
  - Posturing [Unknown]
  - Vomiting [Unknown]
  - Blood bicarbonate increased [Unknown]
  - Fall [Unknown]
  - Perseveration [Unknown]
  - Muscle twitching [Recovered/Resolved]
  - Communication disorder [Unknown]
  - Echolalia [Unknown]
  - Psychotic disorder [Unknown]
  - Restlessness [Unknown]
  - Headache [Unknown]
  - Reduced facial expression [Unknown]
  - Confusional state [Unknown]
  - Urinary retention [Unknown]
  - Sedation complication [Unknown]
  - Muscle tightness [Unknown]
  - Fear [Unknown]
  - Impulsive behaviour [Unknown]
  - Abnormal behaviour [Recovered/Resolved]
  - Catatonia [Recovered/Resolved]
  - Heart rate increased [Unknown]
  - Ataxia [Recovered/Resolved]
  - Crying [Unknown]
  - Eye movement disorder [Unknown]
  - Tachycardia [Unknown]
  - Hypotonia [Unknown]
  - Nervous system disorder [Unknown]
  - Obsessive thoughts [Unknown]
  - Memory impairment [Recovered/Resolved]
  - Tearfulness [Unknown]
  - Gait disturbance [Unknown]
  - Paranoia [Unknown]
  - Decreased eye contact [Unknown]
  - Clonus [Recovered/Resolved]
  - Myoclonus [Unknown]
  - Affect lability [Unknown]
  - Musculoskeletal pain [Unknown]
  - Axillary pain [Unknown]
  - Contusion [Unknown]
  - Drug interaction [Recovered/Resolved]
  - Movement disorder [Recovered/Resolved]
  - Blood pressure systolic increased [Unknown]
  - Mania [Unknown]
  - Tension [Unknown]
  - Blood alkaline phosphatase increased [Unknown]
  - Somnolence [Unknown]
  - Urinary incontinence [Unknown]
  - Pain in extremity [Unknown]
  - Grimacing [Unknown]
  - Pollakiuria [Unknown]
  - Dysuria [Unknown]
  - Insomnia [Unknown]
  - Blunted affect [Unknown]
  - Respiration abnormal [Unknown]
  - Regressive behaviour [Not Recovered/Not Resolved]
  - Onychoclasis [Unknown]
  - Incoherent [Unknown]
  - Depressed mood [Not Recovered/Not Resolved]
  - Unresponsive to stimuli [Recovered/Resolved]
  - Anxiety [Unknown]
  - Mutism [Unknown]
  - Flat affect [Unknown]
  - Serotonin syndrome [Recovered/Resolved]
  - Aggression [Recovered/Resolved]
  - Irritability [Unknown]
  - Screaming [Unknown]
  - Arthralgia [Unknown]
  - Blood pressure diastolic decreased [Unknown]
  - Delirium [Recovered/Resolved]
  - Inappropriate affect [Unknown]
  - Bladder pain [Unknown]
  - Erythema [Unknown]
  - Attention-seeking behaviour [Unknown]
  - Joint injury [Unknown]
  - Disorientation [Unknown]
  - Suicidal ideation [Unknown]
  - Persecutory delusion [Unknown]

NARRATIVE: CASE EVENT DATE: 201902
